FAERS Safety Report 18193498 (Version 1)
Quarter: 2020Q3

REPORT INFORMATION
  Report Type: Spontaneous
  Country: US (occurrence: US)
  Receive Date: 20200825
  Receipt Date: 20200825
  Transmission Date: 20201103
  Serious: Yes (Life-Threatening)
  Sender: FDA-Public Use
  Company Number: US-MYLANLABS-2020M1073422

PATIENT
  Age: 49 Year
  Sex: Male

DRUGS (2)
  1. TRANEXAMIC ACID. [Suspect]
     Active Substance: TRANEXAMIC ACID
     Indication: HAEMORRHAGE
     Dosage: UNK
     Route: 065
  2. DDAVP [Suspect]
     Active Substance: DESMOPRESSIN ACETATE
     Indication: HAEMORRHAGE
     Dosage: 1 DOSAGE FORM
     Route: 065

REACTIONS (1)
  - Drug ineffective [Unknown]
